FAERS Safety Report 19960227 (Version 1)
Quarter: 2021Q4

REPORT INFORMATION
  Report Type: Spontaneous
  Country: CN (occurrence: CN)
  Receive Date: 20211015
  Receipt Date: 20211015
  Transmission Date: 20220303
  Serious: Yes (Other)
  Sender: FDA-Public Use
  Company Number: CN-BAXTER-2021BAX027159

PATIENT
  Age: 49 Year
  Sex: Female
  Weight: 53.5 kg

DRUGS (4)
  1. CYCLOPHOSPHAMIDE [Suspect]
     Active Substance: CYCLOPHOSPHAMIDE
     Indication: Invasive ductal breast carcinoma
     Route: 041
     Dates: start: 20200716, end: 20200716
  2. SODIUM CHLORIDE [Suspect]
     Active Substance: SODIUM CHLORIDE
     Indication: Medication dilution
     Dosage: DILUENT FOR CYCLOPHOSPHAMIDE(0.9% NS 500ML + CYCLOPHOSPHAMIDE 0.6G)
     Route: 041
     Dates: start: 20200716, end: 20200716
  3. SODIUM CHLORIDE [Suspect]
     Active Substance: SODIUM CHLORIDE
     Dosage: DILUENT FOR EPIRUBICIN(0.9% NS 60ML + EPIRUBICIN 70MG)
     Route: 041
     Dates: start: 20200716, end: 20200717
  4. EPIRUBICIN HYDROCHLORIDE [Suspect]
     Active Substance: EPIRUBICIN HYDROCHLORIDE
     Indication: Invasive ductal breast carcinoma
     Route: 041
     Dates: start: 20200716, end: 20200717

REACTIONS (3)
  - Myelosuppression [Recovering/Resolving]
  - White blood cell count decreased [Recovering/Resolving]
  - Granulocytopenia [Recovering/Resolving]

NARRATIVE: CASE EVENT DATE: 20200728
